FAERS Safety Report 21750973 (Version 4)
Quarter: 2023Q1

REPORT INFORMATION
  Report Type: Spontaneous
  Country: US (occurrence: US)
  Receive Date: 20221219
  Receipt Date: 20230112
  Transmission Date: 20230417
  Serious: Yes (Hospitalization)
  Sender: FDA-Public Use
  Company Number: US-BIOVITRUM-2022US14724

PATIENT
  Age: 1 Year
  Sex: Female

DRUGS (3)
  1. SYNAGIS [Suspect]
     Active Substance: PALIVIZUMAB
     Indication: Antiviral prophylaxis
     Dosage: 100MG PLUS 50 MG
     Dates: start: 20221107
  2. SYNAGIS [Suspect]
     Active Substance: PALIVIZUMAB
     Indication: Congenital hydrocephalus
     Dosage: 100MG PLUS 50 MG
     Dates: start: 20221208
  3. SYNAGIS [Suspect]
     Active Substance: PALIVIZUMAB
     Indication: Foetal growth restriction

REACTIONS (2)
  - Respiratory syncytial virus infection [Recovered/Resolved]
  - Escherichia urinary tract infection [Recovered/Resolved]

NARRATIVE: CASE EVENT DATE: 20221123
